FAERS Safety Report 5339250-9 (Version None)
Quarter: 2007Q2

REPORT INFORMATION
  Report Type: 
  Country: None (occurrence: None)
  Receive Date: 20070322
  Receipt Date: 20061206
  Transmission Date: 20071010
  Serious: Yes (Other)
  Sender: FDA-Public Use
  Company Number: 200614422BCC

PATIENT
  Age: 45 Year
  Sex: Female
  Weight: 74.8435 kg

DRUGS (8)
  1. ALEVE [Suspect]
     Indication: HEADACHE
     Dosage: 440 MG, ORAL
     Route: 048
     Dates: start: 20050101
  2. ALEVE [Suspect]
     Indication: MENSTRUAL DISORDER
     Dosage: 440 MG, ORAL
     Route: 048
     Dates: start: 20050101
  3. ALEVE [Suspect]
     Indication: TOOTHACHE
     Dosage: 440 MG, ORAL
     Route: 048
     Dates: start: 20050101
  4. ALEVE [Suspect]
     Indication: HEADACHE
     Dosage: 440 MG, ORAL
     Route: 048
     Dates: start: 20060101
  5. ALEVE [Suspect]
     Indication: MENSTRUAL DISORDER
     Dosage: 440 MG, ORAL
     Route: 048
     Dates: start: 20060101
  6. ALEVE [Suspect]
     Indication: TOOTHACHE
     Dosage: 440 MG, ORAL
     Route: 048
     Dates: start: 20060101
  7. TRIPLE ANTIBIOTIC CREAM (ANTIBIOTICS FOR TOPICAL USE) [Suspect]
     Dosage: TOPICAL
     Route: 061
  8. ASPIRIN [Concomitant]

REACTIONS (6)
  - HEADACHE [None]
  - HYPERSENSITIVITY [None]
  - NAUSEA [None]
  - SKIN DISORDER [None]
  - SKIN HYPERTROPHY [None]
  - URTICARIA [None]
